FAERS Safety Report 4489048-9 (Version None)
Quarter: 2004Q4

REPORT INFORMATION
  Report Type: 
  Country: None (occurrence: None)
  Receive Date: 20041029
  Receipt Date: 20030605
  Transmission Date: 20050328
  Serious: Yes (Hospitalization, Disabling)
  Sender: FDA-Public Use
  Company Number: US-MERCK-0306USA00639

PATIENT
  Age: 60 Year
  Sex: Female

DRUGS (14)
  1. VIOXX [Suspect]
     Route: 048
     Dates: start: 19990801, end: 20000801
  2. TENORMIN [Concomitant]
     Route: 065
  3. ULTRAM [Concomitant]
     Route: 065
  4. SOMA [Concomitant]
     Route: 065
  5. SYNTHROID [Concomitant]
     Route: 065
  6. ESTRADIOL [Concomitant]
     Route: 065
  7. CLARITIN [Concomitant]
     Route: 065
  8. VERAPAMIL [Concomitant]
     Route: 065
  9. HYDROCHLOROTHIAZIDE [Concomitant]
     Route: 065
  10. ISOSORBIDE [Concomitant]
     Route: 065
  11. RESTORIL [Concomitant]
     Route: 065
  12. ASPIRIN [Concomitant]
     Route: 065
  13. LIPITOR [Concomitant]
     Route: 065
  14. DETROL [Concomitant]
     Route: 065

REACTIONS (50)
  - ABDOMINAL DISTENSION [None]
  - ABDOMINAL PAIN [None]
  - ADVERSE EVENT [None]
  - ASTHENIA [None]
  - BARRETT'S OESOPHAGUS [None]
  - BRADYCARDIA [None]
  - CHEST DISCOMFORT [None]
  - CHEST PAIN [None]
  - CONJUNCTIVITIS [None]
  - COUGH [None]
  - DEPRESSION [None]
  - DIABETES MELLITUS NON-INSULIN-DEPENDENT [None]
  - DIZZINESS [None]
  - DRY SKIN [None]
  - DYSPNOEA [None]
  - EAR PAIN [None]
  - ERYTHEMA [None]
  - FUNGAL INFECTION [None]
  - GASTRITIS [None]
  - GASTROINTESTINAL MOTILITY DISORDER [None]
  - GASTROOESOPHAGEAL REFLUX DISEASE [None]
  - HEADACHE [None]
  - HEAT RASH [None]
  - HYPERHIDROSIS [None]
  - INGROWING NAIL [None]
  - INSOMNIA [None]
  - INTERVERTEBRAL DISC DEGENERATION [None]
  - INTERVERTEBRAL DISC PROTRUSION [None]
  - INTERVERTEBRAL DISC SPACE NARROWING [None]
  - LYMPH NODE PAIN [None]
  - MALAISE [None]
  - MUSCULOSKELETAL DISCOMFORT [None]
  - NAUSEA [None]
  - NODULE [None]
  - ONYCHOMYCOSIS [None]
  - PAIN IN JAW [None]
  - PERIORBITAL CELLULITIS [None]
  - POLYTRAUMATISM [None]
  - POST CONCUSSION SYNDROME [None]
  - PYREXIA [None]
  - RASH VESICULAR [None]
  - RHINITIS ALLERGIC [None]
  - SINUS CONGESTION [None]
  - SINUSITIS [None]
  - SNORING [None]
  - SOMNOLENCE [None]
  - SWELLING FACE [None]
  - SYNCOPE [None]
  - VOMITING [None]
  - WEIGHT INCREASED [None]
